FAERS Safety Report 13862364 (Version 2)
Quarter: 2017Q3

REPORT INFORMATION
  Report Type: Spontaneous
  Country: JP (occurrence: JP)
  Receive Date: 20170813
  Receipt Date: 20170828
  Transmission Date: 20171127
  Serious: Yes (Other)
  Sender: FDA-Public Use
  Company Number: PHJP2017JP025181

PATIENT
  Age: 86 Year
  Sex: Female

DRUGS (6)
  1. REVOLADE TAB [Suspect]
     Active Substance: ELTROMBOPAG
     Dosage: 12.5 MG, ONCE EVERY 6 DAYS
     Route: 048
  2. REVOLADE TAB [Suspect]
     Active Substance: ELTROMBOPAG
     Dosage: UNK, QOD
     Route: 048
  3. REVOLADE TAB [Suspect]
     Active Substance: ELTROMBOPAG
     Dosage: UNK, QOD
     Route: 048
     Dates: start: 20170809
  4. REVOLADE TAB [Suspect]
     Active Substance: ELTROMBOPAG
     Dosage: UNK, ONCE IN EVERY 3 DAYS
     Route: 048
  5. REVOLADE TAB [Suspect]
     Active Substance: ELTROMBOPAG
     Indication: IMMUNE THROMBOCYTOPENIC PURPURA
     Dosage: 12.5 MG, QD
     Route: 048
  6. REVOLADE TAB [Suspect]
     Active Substance: ELTROMBOPAG
     Dosage: UNK, ONCE IN EVERY 5 DAYS
     Route: 048

REACTIONS (1)
  - Platelet count decreased [Unknown]
